FAERS Safety Report 19087278 (Version 3)
Quarter: 2021Q2

REPORT INFORMATION
  Report Type: Spontaneous
  Country: US (occurrence: US)
  Receive Date: 20210402
  Receipt Date: 20210510
  Transmission Date: 20210717
  Serious: No
  Sender: FDA-Public Use
  Company Number: US-BIOGEN-2021BI00996576

PATIENT
  Sex: Female

DRUGS (2)
  1. TECFIDERA [Suspect]
     Active Substance: DIMETHYL FUMARATE
     Route: 048
     Dates: start: 20180604, end: 20180906
  2. TECFIDERA [Suspect]
     Active Substance: DIMETHYL FUMARATE
     Indication: MULTIPLE SCLEROSIS
     Route: 065
     Dates: start: 20200421, end: 20200706

REACTIONS (6)
  - Liver disorder [Unknown]
  - Gastric disorder [Unknown]
  - Multiple sclerosis [Not Recovered/Not Resolved]
  - Abdominal discomfort [Unknown]
  - Skin haemorrhage [Unknown]
  - Hypersensitivity [Recovered/Resolved]
